FAERS Safety Report 12629608 (Version 4)
Quarter: 2016Q3

REPORT INFORMATION
  Report Type: Spontaneous
  Country: US (occurrence: US)
  Receive Date: 20160808
  Receipt Date: 20160829
  Transmission Date: 20161109
  Serious: Yes (Other)
  Sender: FDA-Public Use
  Company Number: US-PFIZER INC-2016369421

PATIENT
  Age: 67 Year
  Sex: Female
  Weight: 50.79 kg

DRUGS (2)
  1. IBRANCE [Suspect]
     Active Substance: PALBOCICLIB
     Indication: BREAST CANCER METASTATIC
     Dosage: 100 MG, CYCLIC (1D-21D Q 28 D)
     Route: 048
     Dates: start: 20160714
  2. IBRANCE [Suspect]
     Active Substance: PALBOCICLIB
     Dosage: 75 MG, CYCLIC (1D-21D Q 28 D)
     Route: 048
     Dates: start: 20160714

REACTIONS (7)
  - Stomatitis [Unknown]
  - Oedema peripheral [Unknown]
  - Haemoglobin decreased [Unknown]
  - Haematocrit decreased [Unknown]
  - Vaginal discharge [Unknown]
  - Alopecia [Unknown]
  - Tooth abscess [Unknown]

NARRATIVE: CASE EVENT DATE: 201607
